FAERS Safety Report 14938529 (Version 1)
Quarter: 2018Q2

REPORT INFORMATION
  Report Type: Spontaneous
  Country: CH (occurrence: CH)
  Receive Date: 20180525
  Receipt Date: 20180525
  Transmission Date: 20180711
  Serious: Yes (Other)
  Sender: FDA-Public Use
  Company Number: CH-TEVA-2018-CH-898399

PATIENT
  Sex: Male

DRUGS (1)
  1. CO-AMOXI -MEPHA 1000 LACTAB [Suspect]
     Active Substance: AMOXICILLIN\CLAVULANATE POTASSIUM
     Dosage: 2000 MILLIGRAM DAILY;
     Route: 048
     Dates: start: 20170829, end: 20170905

REACTIONS (1)
  - Hepatitis cholestatic [Recovering/Resolving]

NARRATIVE: CASE EVENT DATE: 2017
